FAERS Safety Report 16229190 (Version 1)
Quarter: 2019Q2

REPORT INFORMATION
  Report Type: Spontaneous
  Country: US (occurrence: US)
  Receive Date: 20190423
  Receipt Date: 20190423
  Transmission Date: 20190711
  Serious: Yes (Life-Threatening, Hospitalization, Other)
  Sender: FDA-Public Use
  Company Number: US-HIKMA PHARMACEUTICALS USA INC.-US-H14001-19-02521

PATIENT
  Age: 45 Year
  Sex: Male

DRUGS (5)
  1. AZACYTIDINE [Concomitant]
     Active Substance: AZACITIDINE
     Indication: METASTATIC MALIGNANT MELANOMA
     Route: 065
  2. PREDNISONE. [Suspect]
     Active Substance: PREDNISONE
     Indication: NEPHRITIS ALLERGIC
     Route: 065
  3. PACLITAXEL. [Suspect]
     Active Substance: PACLITAXEL
     Indication: ACUTE KIDNEY INJURY
     Route: 065
  4. PEMBROLIZUMAB. [Concomitant]
     Active Substance: PEMBROLIZUMAB
     Indication: METASTATIC MALIGNANT MELANOMA
     Route: 065
  5. IPILIMUMAB [Concomitant]
     Active Substance: IPILIMUMAB
     Indication: ACUTE KIDNEY INJURY
     Route: 065

REACTIONS (1)
  - Tumour lysis syndrome [Unknown]
